FAERS Safety Report 5738487-4 (Version None)
Quarter: 2008Q2

REPORT INFORMATION
  Report Type: 
  Country: None (occurrence: None)
  Receive Date: 20080513
  Receipt Date: 20080424
  Transmission Date: 20081010
  Serious: Yes (Hospitalization)
  Sender: FDA-Public Use
  Company Number: DSA_31413_2008

PATIENT
  Sex: Female
  Weight: 73.9363 kg

DRUGS (5)
  1. VASERETIC [Suspect]
     Indication: BLOOD PRESSURE
     Dosage: (1 DF QD 10/25 MG TABLET ORAL)
     Route: 048
     Dates: start: 20080201
  2. VASERETIC [Suspect]
     Indication: BLOOD PRESSURE
     Dosage: (1 DF QD 10/25 MG TABLET ORAL)
     Route: 048
  3. TOPROL-XL [Concomitant]
  4. PRANDIN /00882701/ [Concomitant]
  5. METFORMIN HCL [Concomitant]

REACTIONS (9)
  - BLOOD GLUCOSE INCREASED [None]
  - BLOOD PRESSURE INCREASED [None]
  - CATARACT [None]
  - CYSTITIS [None]
  - DIZZINESS [None]
  - EAR INFECTION [None]
  - JOINT SWELLING [None]
  - OEDEMA PERIPHERAL [None]
  - PHARMACEUTICAL PRODUCT COMPLAINT [None]
